FAERS Safety Report 9276660 (Version 1)
Quarter: 2013Q2

REPORT INFORMATION
  Report Type: Report from Study
  Country: US (occurrence: US)
  Receive Date: 20130507
  Receipt Date: 20130507
  Transmission Date: 20140414
  Serious: Yes (Hospitalization, Other)
  Sender: FDA-Public Use
  Company Number: US-ALEXION-A201300962

PATIENT
  Age: 28 Year
  Sex: Female
  Weight: 84.81 kg

DRUGS (4)
  1. SOLIRIS [Suspect]
     Indication: PAROXYSMAL NOCTURNAL HAEMOGLOBINURIA
     Dosage: UNK
     Route: 042
     Dates: start: 20070522
  2. SOLIRIS [Suspect]
     Dosage: 1200 MG, Q12D
     Route: 042
     Dates: start: 20130305
  3. ZOFRAN [Concomitant]
     Indication: PREGNANCY
  4. ENOXAPARIN [Concomitant]
     Indication: PREGNANCY
     Dosage: 40 MG, QD
     Route: 058

REACTIONS (2)
  - Pre-eclampsia [Unknown]
  - Premature delivery [Recovered/Resolved]
